FAERS Safety Report 8858553 (Version 1)
Quarter: 2012Q4

REPORT INFORMATION
  Report Type: 
  Country: US (occurrence: US)
  Receive Date: 20121024
  Receipt Date: 20121024
  Transmission Date: 20130627
  Serious: No
  Sender: FDA-Public Use
  Company Number: US-ASTRAZENECA-2012SE78796

PATIENT
  Age: 63 Year
  Sex: Female
  Weight: 65.8 kg

DRUGS (5)
  1. NEXIUM [Suspect]
     Indication: ULCER
     Route: 048
  2. PROTONIX [Suspect]
     Indication: ULCER
     Route: 065
     Dates: start: 2004
  3. LEVOTHYROXINE [Concomitant]
     Indication: THYROID DISORDER
  4. GLIPIZIDE [Concomitant]
     Indication: DIABETES MELLITUS
  5. LANTUS [Concomitant]
     Indication: DIABETES MELLITUS

REACTIONS (5)
  - Abdominal pain upper [Recovering/Resolving]
  - Crying [Unknown]
  - Intentional drug misuse [Unknown]
  - Drug ineffective [Unknown]
  - Off label use [Unknown]
